FAERS Safety Report 8010294-1 (Version None)
Quarter: 2011Q4

REPORT INFORMATION
  Report Type: 
  Country: None (occurrence: None)
  Receive Date: 20111221
  Receipt Date: 20111213
  Transmission Date: 20120403
  Serious: Yes (Hospitalization, Other)
  Sender: FDA-Public Use
  Company Number: ACO_28483_2011

PATIENT
  Age: 46 Year
  Sex: Female

DRUGS (5)
  1. AVONEX [Concomitant]
  2. SAVELLA [Concomitant]
  3. DIVALPROEX (VALPROATE SEMISODIUM) [Concomitant]
  4. ZOLOFT [Concomitant]
  5. AMPYRA [Suspect]
     Indication: PRODUCT USED FOR UNKNOWN INDICATION
     Dosage: 10 MG, BID
     Dates: start: 20100601

REACTIONS (1)
  - CONVULSION [None]
